FAERS Safety Report 20876667 (Version 1)
Quarter: 2022Q2

REPORT INFORMATION
  Report Type: Spontaneous
  Country: US (occurrence: US)
  Receive Date: 20220526
  Receipt Date: 20220526
  Transmission Date: 20220721
  Serious: No
  Sender: FDA-Public Use
  Company Number: US-SUN PHARMACEUTICAL INDUSTRIES LTD-2021R1-302297

PATIENT
  Age: 41 Year
  Sex: Male

DRUGS (2)
  1. DESMOPRESSIN [Suspect]
     Active Substance: DESMOPRESSIN
     Indication: Diabetes insipidus
     Dosage: 3 PUFFS, DAILY(1 PUFF IN THE MORNING AND 2 AT BEDTIME)
     Route: 045
     Dates: start: 20210106, end: 20210907
  2. DESMOPRESSIN [Suspect]
     Active Substance: DESMOPRESSIN
     Dosage: 3 TIMES COMPARED TO MY NORMAL AMOUNT OF 1
     Route: 045

REACTIONS (2)
  - Product administration error [Unknown]
  - Device dispensing error [Unknown]

NARRATIVE: CASE EVENT DATE: 20210907
